FAERS Safety Report 15211756 (Version 1)
Quarter: 2018Q3

REPORT INFORMATION
  Report Type: Spontaneous
  Country: US (occurrence: US)
  Receive Date: 20180702
  Receipt Date: 20180702
  Transmission Date: 20181010
  Serious: Yes (Hospitalization)
  Sender: FDA-Public Use
  Company Number: None

PATIENT
  Age: 34 Year
  Sex: Female
  Weight: 64 kg

DRUGS (1)
  1. PACLITAXEL 6 MG/ML 50 ML VIAL HOSPIRA [Suspect]
     Active Substance: PACLITAXEL
     Indication: BREAST CANCER
     Route: 042
     Dates: start: 20180628

REACTIONS (4)
  - Dizziness [None]
  - Dyspnoea [None]
  - Abdominal pain [None]
  - Erythema [None]

NARRATIVE: CASE EVENT DATE: 20180628
